FAERS Safety Report 8846563 (Version 6)
Quarter: 2013Q4

REPORT INFORMATION
  Report Type: Report from Study
  Country: IE (occurrence: IE)
  Receive Date: 20121017
  Receipt Date: 20131015
  Transmission Date: 20140711
  Serious: Yes (Hospitalization)
  Sender: FDA-Public Use
  Company Number: IE-GLAXOSMITHKLINE-B0838261A

PATIENT
  Age: 53 Year
  Sex: Female
  Weight: 50 kg

DRUGS (4)
  1. LAPATINIB [Suspect]
     Indication: BREAST NEOPLASM
     Dosage: 1000MG PER DAY
     Route: 048
     Dates: start: 20121005
  2. TAXOTERE [Suspect]
     Indication: BREAST NEOPLASM
     Dosage: 110MG PER DAY
     Route: 042
     Dates: start: 20121005
  3. CARBOPLATIN [Suspect]
     Indication: BREAST NEOPLASM
     Dosage: 780MG PER DAY
     Route: 042
     Dates: start: 20121005
  4. HERCEPTIN [Suspect]
     Indication: BREAST NEOPLASM
     Dosage: 400MG PER DAY
     Route: 042
     Dates: start: 20121005

REACTIONS (6)
  - Neutropenic sepsis [Recovered/Resolved]
  - Diarrhoea [Recovered/Resolved]
  - Anaemia [Recovered/Resolved]
  - Rash maculo-papular [Recovered/Resolved]
  - Hyponatraemia [Recovered/Resolved]
  - Hypokalaemia [Recovered/Resolved]
